FAERS Safety Report 6611214-4 (Version None)
Quarter: 2010Q1

REPORT INFORMATION
  Report Type: 
  Country: None (occurrence: None)
  Receive Date: 20100226
  Receipt Date: 20100226
  Transmission Date: 20100710
  Serious: No
  Sender: FDA-Public Use
  Company Number: None

PATIENT
  Sex: Female
  Weight: 56 kg

DRUGS (1)
  1. ARIMIDEX [Suspect]
     Indication: BREAST CANCER
     Dosage: ONCE A DAY 32194-00 TMO121
     Dates: start: 20091222

REACTIONS (4)
  - JOINT SWELLING [None]
  - PAIN IN EXTREMITY [None]
  - RASH [None]
  - SKIN DISCOLOURATION [None]
